FAERS Safety Report 20532494 (Version 1)
Quarter: 2022Q1

REPORT INFORMATION
  Report Type: Spontaneous
  Country: US (occurrence: None)
  Receive Date: 20220228
  Receipt Date: 20220228
  Transmission Date: 20220423
  Serious: No
  Sender: FDA-Public Use
  Company Number: None

PATIENT
  Age: 56 Year
  Sex: Female
  Weight: 91.8 kg

DRUGS (7)
  1. TOUJEO [Suspect]
     Active Substance: INSULIN GLARGINE
     Indication: Diabetes mellitus
     Dosage: OTHER QUANTITY : 1 INJECTION(S);?FREQUENCY : DAILY;?
     Route: 058
  2. Flint Stones [Concomitant]
  3. FISH OIL [Concomitant]
     Active Substance: FISH OIL
  4. ASPIRIN [Concomitant]
     Active Substance: ASPIRIN
  5. VITAMIN E [Concomitant]
     Active Substance: .ALPHA.-TOCOPHEROL
  6. ZINC [Concomitant]
     Active Substance: ZINC
  7. OLIVE OIL [Concomitant]
     Active Substance: OLIVE OIL

REACTIONS (2)
  - Angina pectoris [None]
  - Therapy cessation [None]

NARRATIVE: CASE EVENT DATE: 20220223
